FAERS Safety Report 4674736-1 (Version None)
Quarter: 2005Q2

REPORT INFORMATION
  Report Type: 
  Country: None (occurrence: None)
  Receive Date: 20050526
  Receipt Date: 20050510
  Transmission Date: 20051028
  Serious: Yes (Hospitalization)
  Sender: FDA-Public Use
  Company Number: PHBS2005CA06764

PATIENT
  Age: 73 Year
  Sex: Female

DRUGS (10)
  1. CARBAMAZEPINE [Suspect]
     Indication: CONVULSION
     Dosage: 200 MG, TID
     Route: 048
     Dates: start: 19980101, end: 20050101
  2. DIGOXIN [Concomitant]
     Dosage: 0.25 MG/DAY
  3. FOSAMAX [Concomitant]
     Dosage: UNK, QW
  4. NOVOCLOBAZEM [Concomitant]
     Dosage: 25 MG/DAY
  5. MICARDIS [Concomitant]
     Dosage: 80 MG/DAY
  6. INDAPAMIDE [Concomitant]
     Dosage: 1.25 MG/DAY
  7. WARFARIN [Concomitant]
     Dosage: 5 MG/DAY
  8. LIPITOR [Concomitant]
     Dosage: 10 MG/DAY
  9. FLOVENT [Concomitant]
  10. COMBIVENT [Concomitant]

REACTIONS (12)
  - BLOOD IRON DECREASED [None]
  - BLOOD POTASSIUM DECREASED [None]
  - BLOOD SODIUM DECREASED [None]
  - CEREBROVASCULAR ACCIDENT [None]
  - CONVULSION [None]
  - DYSARTHRIA [None]
  - ELECTROLYTE IMBALANCE [None]
  - FRACTURE [None]
  - HEMIPLEGIA [None]
  - OSTEOPOROSIS [None]
  - OSTEOPOROTIC FRACTURE [None]
  - PAIN [None]
